FAERS Safety Report 15267314 (Version 2)
Quarter: 2018Q4

REPORT INFORMATION
  Report Type: Spontaneous
  Country: US (occurrence: US)
  Receive Date: 20180811
  Receipt Date: 20181011
  Transmission Date: 20190204
  Serious: No
  Sender: FDA-Public Use
  Company Number: US-VIFOR (INTERNATIONAL) INC.-VIT-2016-01712

PATIENT
  Age: 73 Year
  Sex: Female
  Weight: 107.6 kg

DRUGS (38)
  1. ISOSORBIDE MONONITRATE. [Concomitant]
     Active Substance: ISOSORBIDE MONONITRATE
  2. BUSPIRONE HYDROCHLORIDE. [Concomitant]
     Active Substance: BUSPIRONE HYDROCHLORIDE
  3. COLCRYS [Concomitant]
     Active Substance: COLCHICINE
  4. LISINOPRIL. [Concomitant]
     Active Substance: LISINOPRIL
  5. OMEPRAZOLE. [Concomitant]
     Active Substance: OMEPRAZOLE
  6. LEVOTHYROXINE SODIUM. [Concomitant]
     Active Substance: LEVOTHYROXINE SODIUM
  7. CYCLOBENZAPRINE HYDROCHLORIDE. [Concomitant]
     Active Substance: CYCLOBENZAPRINE HYDROCHLORIDE
  8. NORTRIPTYLINE HYDROCHLORIDE. [Concomitant]
     Active Substance: NORTRIPTYLINE HYDROCHLORIDE
  9. CALCITRATE [Concomitant]
     Active Substance: CALCIUM CITRATE
  10. LOTRISONE [Concomitant]
     Active Substance: BETAMETHASONE DIPROPIONATE\CLOTRIMAZOLE
  11. TRIAMCINOLONE ACETONIDE. [Concomitant]
     Active Substance: TRIAMCINOLONE ACETONIDE
  12. VELTASSA [Suspect]
     Active Substance: PATIROMER
     Indication: HYPERKALAEMIA
     Route: 048
  13. VELTASSA [Suspect]
     Active Substance: PATIROMER
     Indication: ESSENTIAL HYPERTENSION
     Route: 048
     Dates: start: 20160325
  14. ZOCOR [Concomitant]
     Active Substance: SIMVASTATIN
  15. NITROSTAT [Concomitant]
     Active Substance: NITROGLYCERIN
  16. ENDOCET [Concomitant]
     Active Substance: ACETAMINOPHEN\OXYCODONE HYDROCHLORIDE
  17. CALCIUM CARBONATE. [Concomitant]
     Active Substance: CALCIUM CARBONATE
  18. VELTASSA [Suspect]
     Active Substance: PATIROMER
     Indication: CHRONIC KIDNEY DISEASE
     Route: 048
     Dates: start: 20171116
  19. VITAMIN B12 [Concomitant]
     Active Substance: CYANOCOBALAMIN
  20. BUMETANIDE. [Concomitant]
     Active Substance: BUMETANIDE
  21. KIONEX [Concomitant]
     Active Substance: SODIUM POLYSTYRENE SULFONATE
  22. NOVOLIN [Concomitant]
     Active Substance: INSULIN HUMAN
     Dosage: 70/30
  23. FLUOROURACIL. [Concomitant]
     Active Substance: FLUOROURACIL
  24. PLAVIX [Concomitant]
     Active Substance: CLOPIDOGREL BISULFATE
  25. CARVEDILOL. [Concomitant]
     Active Substance: CARVEDILOL
  26. FENOFIBRATE. [Concomitant]
     Active Substance: FENOFIBRATE
  27. ALLOPURINOL. [Concomitant]
     Active Substance: ALLOPURINOL
  28. FERAHEME [Concomitant]
     Active Substance: FERUMOXYTOL NON-STOICHIOMETRIC MAGNETITE
  29. AZOLE [Concomitant]
     Active Substance: ALBENDAZOLE
  30. RANEXA [Concomitant]
     Active Substance: RANOLAZINE
  31. AMOXICILLIN. [Concomitant]
     Active Substance: AMOXICILLIN
  32. GABAPENTIN. [Concomitant]
     Active Substance: GABAPENTIN
  33. HYDROXYZINE HYDROCHLORIDE. [Concomitant]
     Active Substance: HYDROXYZINE HYDROCHLORIDE
  34. ASPIRIN. [Concomitant]
     Active Substance: ASPIRIN
  35. MAGNESIUM OXIDE. [Concomitant]
     Active Substance: MAGNESIUM OXIDE
  36. VITAMIN D3 [Concomitant]
     Active Substance: CHOLECALCIFEROL
  37. HYDROXYZINE EMBONATE [Concomitant]
     Active Substance: HYDROXYZINE PAMOATE
  38. KETOCONAZOLE. [Concomitant]
     Active Substance: KETOCONAZOLE

REACTIONS (7)
  - Product dose omission [Unknown]
  - Blood glucose decreased [Unknown]
  - Constipation [Not Recovered/Not Resolved]
  - Vomiting [Unknown]
  - Groin infection [Unknown]
  - Malaise [Unknown]
  - Off label use [Unknown]

NARRATIVE: CASE EVENT DATE: 20160324
